FAERS Safety Report 9489972 (Version 2)
Quarter: 2013Q3

REPORT INFORMATION
  Report Type: Report from Study
  Country: US (occurrence: US)
  Receive Date: 20130829
  Receipt Date: 20130829
  Transmission Date: 20140515
  Serious: Yes (Death, Hospitalization, Other)
  Sender: FDA-Public Use
  Company Number: US-009507513-1103USA01675

PATIENT
  Age: 63 Year
  Sex: Male
  Weight: 104 kg

DRUGS (9)
  1. ZOCOR [Suspect]
     Indication: HYPERCHOLESTEROLAEMIA
     Dosage: 20 MG, QD
     Route: 048
     Dates: start: 20080615, end: 20110302
  2. ZOCOR [Suspect]
     Dosage: UNK
     Route: 048
     Dates: start: 20110320
  3. METHOTREXATE [Suspect]
     Indication: RHEUMATOID ARTHRITIS
     Dosage: 20 MG, QW
     Route: 048
     Dates: start: 20090915, end: 20110302
  4. TOFACITINIB [Suspect]
     Indication: RHEUMATOID ARTHRITIS
     Dosage: 10 MG, BID
     Route: 048
     Dates: start: 20100819, end: 20110228
  5. FOLIC ACID [Concomitant]
     Dosage: 1 MG, QD
     Dates: start: 20050311
  6. BAYER ASPIRIN [Concomitant]
     Dosage: 81 MG, QD
     Dates: start: 20080615
  7. METOPROLOL [Concomitant]
     Dosage: 50 MG, QD
     Dates: start: 20100819
  8. ZOLPIDEM TARTRATE [Concomitant]
     Dosage: 5 MG, QD
     Dates: start: 20110202
  9. VITAMINS (UNSPECIFIED) [Concomitant]
     Dosage: 1 DF, QD
     Route: 048
     Dates: start: 2004

REACTIONS (3)
  - Small cell lung cancer metastatic [Fatal]
  - Liver function test abnormal [Not Recovered/Not Resolved]
  - Abdominal pain [Unknown]
